FAERS Safety Report 19867555 (Version 1)
Quarter: 2021Q3

REPORT INFORMATION
  Report Type: Spontaneous
  Country: GB (occurrence: GB)
  Receive Date: 20210922
  Receipt Date: 20210922
  Transmission Date: 20211014
  Serious: Yes (Other)
  Sender: FDA-Public Use
  Company Number: GB-MYLANLABS-2021M1063678

PATIENT
  Age: 91 Year
  Sex: Female
  Weight: 70 kg

DRUGS (20)
  1. LANSOPRAZOLE. [Concomitant]
     Active Substance: LANSOPRAZOLE
     Indication: ILL-DEFINED DISORDER
     Dosage: UNK, QD, TAKE ONE ONCE DAILY
     Dates: start: 20190712, end: 20210730
  2. COLECALCIFEROL [Concomitant]
     Active Substance: CHOLECALCIFEROL
     Indication: ILL-DEFINED DISORDER
     Dosage: UNK UNK, QD,  1 DAILY
     Dates: start: 20201108
  3. EZETIMIBE. [Concomitant]
     Active Substance: EZETIMIBE
     Indication: ILL-DEFINED DISORDER
     Dosage: UNK, QD, TAKE ONE DAILY
     Dates: start: 20210730
  4. NITROFURANTOIN. [Concomitant]
     Active Substance: NITROFURANTOIN
     Indication: ILL-DEFINED DISORDER
     Dosage: UNK, QD, TAKE ONE TWICE DAILY
     Dates: start: 20210823, end: 20210826
  5. CROTAMITON [Concomitant]
     Active Substance: CROTAMITON
     Indication: ILL-DEFINED DISORDER
     Dosage: UNK, APPLY TO THE AFFECTED AREA TWO OR THREE TIMES D...
     Dates: start: 20210816, end: 20210817
  6. DOCUSATE SODIUM. [Concomitant]
     Active Substance: DOCUSATE SODIUM
     Indication: ILL-DEFINED DISORDER
     Dosage: UNK UNK, BID 2X5ML SPOON TWICE DAILY
     Dates: start: 20210125
  7. HYOSCINE BUTYLBROMIDE [Concomitant]
     Active Substance: BUTYLSCOPOLAMINE BROMIDE
     Indication: ILL-DEFINED DISORDER
     Dosage: UNK, TAKE TWO 4 TIMES/DAY
     Dates: start: 20210809, end: 20210816
  8. SALBUTAMOL [Concomitant]
     Active Substance: ALBUTEROL
     Indication: ILL-DEFINED DISORDER
     Dosage: UNK, TAKE 1 OR 2 EVERY 8 HOURS WHEN NECESSARY
     Dates: start: 20200429
  9. LORATADINE. [Concomitant]
     Active Substance: LORATADINE
     Indication: ILL-DEFINED DISORDER
     Dosage: UNK, QD, TAKE ONE DAILY IN THE MORNING
     Dates: start: 20210823
  10. CARBOMER [Concomitant]
     Active Substance: CARBOMER
     Indication: ILL-DEFINED DISORDER
     Dosage: UNK, ONE DROP 3?4 TIMES/DAY AS REQUIRED
     Dates: start: 20210529
  11. IBUPROFEN. [Concomitant]
     Active Substance: IBUPROFEN
     Indication: ILL-DEFINED DISORDER
     Dosage: UNK, TID, APPLY 3 TIMES/DAY
     Dates: start: 20210902, end: 20210912
  12. LACTULOSE. [Concomitant]
     Active Substance: LACTULOSE
     Indication: ILL-DEFINED DISORDER
     Dosage: 15 MILLILITER, BID
     Dates: start: 20190712
  13. PARACETAMOL [Concomitant]
     Active Substance: ACETAMINOPHEN
     Indication: ILL-DEFINED DISORDER
     Dosage: UNK, TAKE 1 OR 2 EVERY 8 HOURS WHEN NECESSARY
     Dates: start: 20190712
  14. CETIRIZINE [Concomitant]
     Active Substance: CETIRIZINE HYDROCHLORIDE
     Indication: ILL-DEFINED DISORDER
     Dosage: UNK, TAKE ONE DAILYIN THE MORNING
     Dates: start: 20210816
  15. CLENIL MODULITE [Concomitant]
     Active Substance: BECLOMETHASONE DIPROPIONATE
     Indication: ILL-DEFINED DISORDER
     Dosage: UNK UNK, BID, INHALE 2 DOSES TWICE DAILY
     Dates: start: 20190717
  16. HYDROCORTISONE. [Concomitant]
     Active Substance: HYDROCORTISONE
     Indication: ILL-DEFINED DISORDER
     Dosage: UNK, BID, APPLY TWICE DAILY FOR 3?4 DAYS ?AS DIRECTED
     Dates: start: 20210823, end: 20210827
  17. MOVICOL [Concomitant]
     Active Substance: POLYETHYLENE GLYCOL 3350\POTASSIUM CHLORIDE\SODIUM BICARBONATE\SODIUM CHLORIDE
     Indication: ILL-DEFINED DISORDER
     Dosage: UNK, QD, 1 ?2 DAILY
     Dates: start: 20210408
  18. SENNA                              /00142201/ [Concomitant]
     Active Substance: SENNA LEAF
     Indication: ILL-DEFINED DISORDER
     Dosage: UNK, QD, TAKE 2 AT NIGHT
     Dates: start: 20190712
  19. NITROFURANTOIN. [Suspect]
     Active Substance: NITROFURANTOIN
     Indication: PRODUCT USED FOR UNKNOWN INDICATION
     Dosage: 100 MILLIGRAM
     Dates: start: 20210827
  20. ASPIRIN                            /00002701/ [Concomitant]
     Active Substance: ASPIRIN
     Indication: ILL-DEFINED DISORDER
     Dosage: UNK UNK, QD, TAKE ONE DAILY
     Dates: start: 20200724

REACTIONS (2)
  - Throat irritation [Unknown]
  - Skin reaction [Unknown]

NARRATIVE: CASE EVENT DATE: 20210914
